FAERS Safety Report 17794210 (Version 1)
Quarter: 2020Q2

REPORT INFORMATION
  Report Type: Report from Study
  Country: IT (occurrence: IT)
  Receive Date: 20200515
  Receipt Date: 20200515
  Transmission Date: 20200714
  Serious: Yes (Other)
  Sender: FDA-Public Use
  Company Number: IT-MYLANLABS-2020M1047557

PATIENT
  Age: 15 Year
  Sex: Male

DRUGS (4)
  1. DEPAKIN [Concomitant]
     Active Substance: VALPROATE SODIUM
     Dosage: 1 GRAM
  2. VIMPAT [Concomitant]
     Active Substance: LACOSAMIDE
     Dosage: 250 MILLIGRAM
  3. RISPERIDONE. [Suspect]
     Active Substance: RISPERIDONE
     Indication: BEHAVIOUR DISORDER
     Dosage: 2 MILLIGRAM, QD
     Route: 048
     Dates: start: 20160101, end: 20160914
  4. PROZIN                             /00011902/ [Suspect]
     Active Substance: CHLORPROMAZINE HYDROCHLORIDE
     Indication: BEHAVIOUR DISORDER
     Dosage: 1 DOSAGE FORM, QD
     Route: 048
     Dates: start: 20160101, end: 20160914

REACTIONS (4)
  - Salivary hypersecretion [Recovering/Resolving]
  - Extrapyramidal disorder [Recovering/Resolving]
  - Dystonia [Recovering/Resolving]
  - Hunger [Recovering/Resolving]

NARRATIVE: CASE EVENT DATE: 20160914
